FAERS Safety Report 18011280 (Version 1)
Quarter: 2020Q3

REPORT INFORMATION
  Report Type: Spontaneous
  Country: US (occurrence: US)
  Receive Date: 20200712
  Receipt Date: 20200712
  Transmission Date: 20201103
  Serious: No
  Sender: FDA-Public Use
  Company Number: US-ASTRAZENECA-2020SE84928

PATIENT
  Sex: Female

DRUGS (1)
  1. SYMBICORT [Suspect]
     Active Substance: BUDESONIDE\FORMOTEROL FUMARATE DIHYDRATE
     Indication: ASTHMA
     Dosage: UNKNOWN DOSE, DAILY
     Route: 055

REACTIONS (7)
  - Fall [Unknown]
  - Nerve compression [Unknown]
  - Intentional product misuse [Unknown]
  - Illness [Unknown]
  - Sneezing [Unknown]
  - Pain [Unknown]
  - Hypersensitivity [Unknown]
